FAERS Safety Report 7425790-5 (Version None)
Quarter: 2011Q2

REPORT INFORMATION
  Report Type: 
  Country: None (occurrence: None)
  Receive Date: 20110418
  Receipt Date: 20110418
  Transmission Date: 20111010
  Serious: Yes (Life-Threatening, Hospitalization)
  Sender: FDA-Public Use
  Company Number: None

PATIENT
  Age: 60 Year
  Sex: Female

DRUGS (1)
  1. ESZOPICLONE [Suspect]
     Indication: SLEEP STUDY
     Dosage: 1 TAB X1 PO
     Route: 048

REACTIONS (1)
  - DYSPNOEA [None]
